FAERS Safety Report 14848591 (Version 1)
Quarter: 2018Q2

REPORT INFORMATION
  Report Type: Spontaneous
  Country: IT (occurrence: IT)
  Receive Date: 20180504
  Receipt Date: 20180504
  Transmission Date: 20180711
  Serious: Yes (Hospitalization)
  Sender: FDA-Public Use
  Company Number: IT-ALLERGAN-1823982US

PATIENT
  Age: 89 Year
  Sex: Female

DRUGS (8)
  1. KERITRINA [Concomitant]
     Dosage: 5 MG, UNK
     Route: 065
  2. LASIX [Concomitant]
     Active Substance: FUROSEMIDE
     Dosage: 25 MG, UNK
     Route: 065
  3. TRITTICO [Suspect]
     Active Substance: TRAZODONE HYDROCHLORIDE
     Indication: DEPRESSION
     Dosage: 75 MG, QD
     Route: 048
     Dates: start: 20170101, end: 20170831
  4. XANAX [Concomitant]
     Active Substance: ALPRAZOLAM
     Dosage: 10 GTT, UNK
     Route: 065
  5. NERIXIA [Concomitant]
     Active Substance: NERIDRONIC ACID
     Route: 065
  6. SIMVASTATIN. [Concomitant]
     Active Substance: SIMVASTATIN
  7. RIFACOL [Concomitant]
     Active Substance: RIFAXIMIN
     Dosage: 200 MG, UNK
     Route: 065
  8. CITALOPRAM HYDROBROMIDE - BP [Suspect]
     Active Substance: CITALOPRAM HYDROBROMIDE
     Indication: DEPRESSION
     Dosage: UNK
     Route: 048
     Dates: start: 20170101, end: 20170831

REACTIONS (3)
  - Presyncope [Recovering/Resolving]
  - Vertigo [Recovering/Resolving]
  - Hyperhidrosis [Recovering/Resolving]

NARRATIVE: CASE EVENT DATE: 20170831
